FAERS Safety Report 9583122 (Version 1)
Quarter: 2013Q4

REPORT INFORMATION
  Report Type: Spontaneous
  Country: US (occurrence: US)
  Receive Date: 20131002
  Receipt Date: 20131002
  Transmission Date: 20140711
  Serious: No
  Sender: FDA-Public Use
  Company Number: US-AMGEN-USASP2013044878

PATIENT
  Age: 35 Year
  Sex: Female
  Weight: 61.22 kg

DRUGS (11)
  1. ENBREL [Suspect]
     Indication: PRODUCT USED FOR UNKNOWN INDICATION
     Dosage: 50 MG, QWK
     Route: 058
  2. SINGULAIR [Concomitant]
     Dosage: 4 MG, UNK
  3. XYZAL [Concomitant]
     Dosage: UNK
  4. ALBUTEROL                          /00139501/ [Concomitant]
     Dosage: 90 MUG, UNK
  5. MSM [Concomitant]
     Dosage: 1000 MG, UNK
  6. FISH OIL [Concomitant]
     Dosage: UNK
  7. VITAMIN C                          /00008001/ [Concomitant]
     Dosage: 500 MG, UNK
  8. VITAMIN B12                        /00056201/ [Concomitant]
     Dosage: 1000 UNK, UNK
  9. EPINEPHRINE [Concomitant]
     Dosage: UNK
  10. IRON PLUS                          /00292601/ [Concomitant]
     Dosage: UNK
  11. POTASSIUM [Concomitant]
     Dosage: 25 MEQ, UNK

REACTIONS (1)
  - Chronic sinusitis [Unknown]
